FAERS Safety Report 7757750-9 (Version None)
Quarter: 2011Q3

REPORT INFORMATION
  Report Type: 
  Country: None (occurrence: None)
  Receive Date: 20110917
  Receipt Date: 20110905
  Transmission Date: 20111222
  Serious: Yes (Other)
  Sender: FDA-Public Use
  Company Number: US-MYLANLABS-2011S1018942

PATIENT
  Age: 47 Year
  Sex: Female

DRUGS (9)
  1. ZOLPIDEM [Concomitant]
     Dosage: 10MG AS NEEDED
     Route: 065
  2. VERAPAMIL [Suspect]
     Dosage: FAST-ACTING
     Route: 065
  3. ISOSORBIDE MONONITRATE [Concomitant]
     Route: 065
  4. LISINOPRIL [Concomitant]
     Dosage: 10MG DAILY AS NEEDED
     Route: 065
  5. NORMODYNE [Suspect]
     Route: 065
  6. HYDROCHLOROTHIAZIDE [Concomitant]
     Route: 065
  7. VERAPAMIL [Suspect]
     Route: 065
  8. FLUOXETINE [Concomitant]
     Route: 065
  9. LORAZEPAM [Concomitant]
     Route: 065

REACTIONS (3)
  - WITHDRAWAL SYNDROME [None]
  - ACUTE MYOCARDIAL INFARCTION [None]
  - ARTERIOSPASM CORONARY [None]
